FAERS Safety Report 24540387 (Version 2)
Quarter: 2024Q4

REPORT INFORMATION
  Report Type: Spontaneous
  Country: US (occurrence: US)
  Receive Date: 20241023
  Receipt Date: 20241106
  Transmission Date: 20250115
  Serious: Yes (Hospitalization)
  Sender: DAIICHI
  Company Number: US-DAIICHI SANKYO, INC.-DS-2024-103146-USAA

PATIENT
  Sex: Male

DRUGS (1)
  1. VANFLYTA [Suspect]
     Active Substance: QUIZARTINIB DIHYDROCHLORIDE
     Indication: Acute leukaemia
     Dosage: 17.7 MG, QD
     Route: 048
     Dates: start: 20241007

REACTIONS (3)
  - Adverse drug reaction [Recovering/Resolving]
  - Diarrhoea [Recovering/Resolving]
  - Infection [Not Recovered/Not Resolved]
